FAERS Safety Report 10387785 (Version 1)
Quarter: 2014Q1

REPORT INFORMATION
  Report Type: Spontaneous
  Country: US (occurrence: None)
  Receive Date: 20140306
  Receipt Date: 20140306
  Transmission Date: 20141002
  Serious: Yes (Other)
  Sender: FDA-Public Use
  Company Number: 163-21880-13080699

PATIENT
  Age: 50 Year
  Sex: Male
  Weight: 76.2 kg

DRUGS (10)
  1. REVLIMID (LENALIDOMIDE) (10 MILLIGRAM, CAPSULES) [Suspect]
     Indication: PLASMA CELL MYELOMA
     Route: 048
     Dates: start: 20130521, end: 2013
  2. DEXAMETHASONE (DEXAMETHASONE) [Concomitant]
  3. FAMOTIDINE (FAMOTIDINE) [Concomitant]
  4. GABAPENTIN (GABAPENTIN) [Concomitant]
  5. METFORMIN HCL (METFORMIN HYDROCHLORIDE) [Concomitant]
  6. SPIRONOLACTONE (SPIRONOLACTONE) [Concomitant]
  7. VITAMIN B COMPLEX (B-KLOMPEX ^LECIVA^) [Concomitant]
  8. ESSENTIAL MAN 50+ (OTHER THERAPEUTIC PRODUCTS) [Concomitant]
  9. TRAMADOL HCL (TRAMADOL HYDROCHLORIDE) [Concomitant]
  10. FINASTERIDE (FINASTERIDE) (TABLETS) [Concomitant]

REACTIONS (1)
  - Poor peripheral circulation [None]
